FAERS Safety Report 19780124 (Version 1)
Quarter: 2021Q3

REPORT INFORMATION
  Report Type: Spontaneous
  Country: GB (occurrence: GB)
  Receive Date: 20210902
  Receipt Date: 20210902
  Transmission Date: 20211014
  Serious: Yes (Other)
  Sender: FDA-Public Use
  Company Number: GB-PFIZER INC-202101081550

PATIENT
  Age: 57 Year
  Sex: Male
  Weight: 93 kg

DRUGS (16)
  1. CREON [Concomitant]
     Active Substance: PANCRELIPASE AMYLASE\PANCRELIPASE LIPASE\PANCRELIPASE PROTEASE
     Indication: ILL-DEFINED DISORDER
     Dosage: UNK
  2. COTRIMOXAZOLE [Concomitant]
     Active Substance: SULFAMETHOXAZOLE\TRIMETHOPRIM
     Indication: ILL-DEFINED DISORDER
     Dosage: UNK
  3. PYRIDOXINE [Concomitant]
     Active Substance: PYRIDOXINE
     Indication: ILL-DEFINED DISORDER
     Dosage: UNK
  4. AMLODIPINE MALEATE [Concomitant]
     Active Substance: AMLODIPINE MALEATE
     Indication: ILL-DEFINED DISORDER
     Dosage: UNK
  5. LACTULOSE. [Concomitant]
     Active Substance: LACTULOSE
     Indication: ILL-DEFINED DISORDER
     Dosage: UNK
  6. LINAGLIPTIN [Concomitant]
     Active Substance: LINAGLIPTIN
     Indication: ILL-DEFINED DISORDER
     Dosage: UNK
  7. MUPIROCIN. [Concomitant]
     Active Substance: MUPIROCIN
     Indication: ILL-DEFINED DISORDER
     Dosage: UNK
  8. OXYCODONE [Concomitant]
     Active Substance: OXYCODONE
     Indication: ILL-DEFINED DISORDER
     Dosage: UNK
  9. SENNA [Concomitant]
     Active Substance: SENNA LEAF\SENNOSIDES\SENNOSIDES A AND B
     Indication: ILL-DEFINED DISORDER
     Dosage: UNK
  10. LINEZOLID. [Suspect]
     Active Substance: LINEZOLID
     Indication: STAPHYLOCOCCAL BACTERAEMIA
     Dosage: 600 MG, TWICE DAILY
     Route: 048
     Dates: start: 20210806, end: 20210817
  11. METFORMIN HYDROCHLORIDE. [Concomitant]
     Active Substance: METFORMIN HYDROCHLORIDE
     Indication: ILL-DEFINED DISORDER
     Dosage: UNK
  12. OMEPRAZOLE SODIUM [Concomitant]
     Active Substance: OMEPRAZOLE SODIUM
     Indication: ILL-DEFINED DISORDER
     Dosage: UNK
  13. PARACETAMOL [Concomitant]
     Active Substance: ACETAMINOPHEN
     Indication: ILL-DEFINED DISORDER
     Dosage: UNK
  14. CHLORHEXIDINE GLUCONATE. [Concomitant]
     Active Substance: CHLORHEXIDINE GLUCONATE
     Indication: ILL-DEFINED DISORDER
     Dosage: UNK
  15. ACICLOVIR [Concomitant]
     Active Substance: ACYCLOVIR
     Indication: ILL-DEFINED DISORDER
     Dosage: UNK
  16. PEPPERMINT OIL [Concomitant]
     Active Substance: PEPPERMINT OIL
     Indication: ILL-DEFINED DISORDER
     Dosage: UNK

REACTIONS (8)
  - Acute kidney injury [Unknown]
  - Vomiting [Unknown]
  - Decreased appetite [Unknown]
  - Dehydration [Unknown]
  - Toxicity to various agents [Recovering/Resolving]
  - Malaise [Unknown]
  - Abdominal pain [Unknown]
  - Blood lactic acid increased [Unknown]

NARRATIVE: CASE EVENT DATE: 20210815
